FAERS Safety Report 4578394-6 (Version None)
Quarter: 2005Q1

REPORT INFORMATION
  Report Type: 
  Country: None (occurrence: None)
  Receive Date: 20050211
  Receipt Date: 20050131
  Transmission Date: 20050727
  Serious: Yes (Death)
  Sender: FDA-Public Use
  Company Number: US-BRISTOL-MYERS SQUIBB COMPANY-12843934

PATIENT
  Age: 70 Year
  Sex: Male
  Weight: 82 kg

DRUGS (4)
  1. BUSPAR [Suspect]
     Indication: DEPRESSION
     Route: 048
     Dates: start: 19970101, end: 20010101
  2. GLUCOPHAGE [Concomitant]
  3. LASIX [Concomitant]
  4. ACCUPRIL [Concomitant]

REACTIONS (3)
  - DEATH [None]
  - DEPRESSED LEVEL OF CONSCIOUSNESS [None]
  - FEELING ABNORMAL [None]
